FAERS Safety Report 20820210 (Version 1)
Quarter: 2022Q2

REPORT INFORMATION
  Report Type: Spontaneous
  Country: US (occurrence: US)
  Receive Date: 20220512
  Receipt Date: 20220512
  Transmission Date: 20220721
  Serious: No
  Sender: FDA-Public Use
  Company Number: US-Covis Pharma GmbH-2021COV00212

PATIENT
  Sex: Female
  Weight: 53 kg

DRUGS (4)
  1. PRILOSEC [Suspect]
     Active Substance: OMEPRAZOLE MAGNESIUM
     Indication: Product used for unknown indication
     Route: 048
  2. OMEPRAZOLE [Suspect]
     Active Substance: OMEPRAZOLE
     Indication: Product used for unknown indication
     Route: 048
  3. COVID-19 VACCINE NOS [Suspect]
     Active Substance: COVID-19 VACCINE NOS
     Indication: Product used for unknown indication
     Dates: start: 20210416
  4. SYNTHROID [Concomitant]
     Active Substance: LEVOTHYROXINE SODIUM

REACTIONS (6)
  - Oral discomfort [Recovering/Resolving]
  - Tongue discomfort [Recovering/Resolving]
  - Nasal discomfort [Recovering/Resolving]
  - Oral discomfort [Recovering/Resolving]
  - Throat irritation [Recovering/Resolving]
  - Eye irritation [Recovering/Resolving]
